FAERS Safety Report 8641007 (Version 3)
Quarter: 2012Q4

REPORT INFORMATION
  Report Type: 
  Country: JP (occurrence: JP)
  Receive Date: 20120628
  Receipt Date: 20120905
  Transmission Date: 20130627
  Serious: Yes (Death, Hospitalization)
  Sender: FDA-Public Use
  Company Number: JP-JNJFOC-20120613353

PATIENT
  Age: 76 Year
  Sex: Male
  Weight: 44 kg

DRUGS (8)
  1. TRAMAL [Suspect]
     Indication: PRODUCT USED FOR UNKNOWN INDICATION
     Dosage: one per one day
     Route: 048
     Dates: start: 20120403, end: 20120404
  2. DEXAMETHASONE [Suspect]
     Indication: PRODUCT USED FOR UNKNOWN INDICATION
     Dosage: 1 per 1 day
     Route: 048
     Dates: start: 20120405, end: 20120426
  3. DEXAMETHASONE [Suspect]
     Indication: PRODUCT USED FOR UNKNOWN INDICATION
     Dosage: one per one day
     Route: 048
     Dates: start: 20120406, end: 20120413
  4. VELCADE [Suspect]
     Indication: MULTIPLE MYELOMA
     Dosage: 1 per 1 day
     Route: 042
     Dates: start: 20120419, end: 20120419
  5. VELCADE [Suspect]
     Indication: MULTIPLE MYELOMA
     Dosage: 1 per 1 day
     Route: 042
     Dates: start: 20120412, end: 20120412
  6. VELCADE [Suspect]
     Indication: MULTIPLE MYELOMA
     Dosage: 1 per 1 day
     Route: 042
     Dates: start: 20120405, end: 20120405
  7. VELCADE [Suspect]
     Indication: MULTIPLE MYELOMA
     Dosage: 1 per 1 day
     Route: 042
     Dates: start: 20120426, end: 20120426
  8. OMEPRAZOLE [Concomitant]
     Dosage: 1 per 1 day
     Route: 065
     Dates: start: 20120501, end: 20120527

REACTIONS (2)
  - Cardiac failure [Fatal]
  - Gastric ulcer [Recovering/Resolving]
